FAERS Safety Report 6300902-5 (Version None)
Quarter: 2009Q3

REPORT INFORMATION
  Report Type: 
  Country: None (occurrence: None)
  Receive Date: 20090806
  Receipt Date: 20090806
  Transmission Date: 20100115
  Serious: Yes (Other)
  Sender: FDA-Public Use
  Company Number: None

PATIENT
  Sex: Female
  Weight: 68.0396 kg

DRUGS (1)
  1. METFORMIN HCL [Suspect]
     Dosage: 500 MG TWO BID PO
     Route: 048
     Dates: start: 20090101, end: 20090715

REACTIONS (2)
  - DIABETES MELLITUS INADEQUATE CONTROL [None]
  - PRODUCT SUBSTITUTION ISSUE [None]
